FAERS Safety Report 8290262-5 (Version None)
Quarter: 2012Q2

REPORT INFORMATION
  Report Type: 
  Country: None (occurrence: None)
  Receive Date: 20120417
  Receipt Date: 20120405
  Transmission Date: 20120825
  Serious: Yes (Hospitalization)
  Sender: FDA-Public Use
  Company Number: US-JNJFOC-20120403022

PATIENT
  Sex: Female
  Weight: 48.3 kg

DRUGS (10)
  1. METHOTREXATE [Concomitant]
  2. ONDANSETRON [Concomitant]
  3. CELECOXIB [Concomitant]
  4. REMICADE [Suspect]
     Indication: INFLAMMATORY BOWEL DISEASE
     Route: 042
  5. CHOLECALCIFEROL [Concomitant]
  6. LANSOPRAZOLE [Concomitant]
  7. REMICADE [Suspect]
     Dosage: 3RD INDUCTION DOSE
     Route: 042
     Dates: start: 20120403
  8. FOLIC ACID [Concomitant]
  9. REMICADE [Suspect]
     Route: 042
  10. METHOTREXATE [Concomitant]
     Dates: start: 20120401

REACTIONS (1)
  - SMALL INTESTINAL OBSTRUCTION [None]
